FAERS Safety Report 24967603 (Version 1)
Quarter: 2025Q1

REPORT INFORMATION
  Report Type: Spontaneous
  Country: US (occurrence: US)
  Receive Date: 20250214
  Receipt Date: 20250214
  Transmission Date: 20250409
  Serious: No
  Sender: LEO PHARM
  Company Number: US-LEO Pharma-377578

PATIENT
  Age: 23 Year
  Sex: Female

DRUGS (1)
  1. ADBRY [Suspect]
     Active Substance: TRALOKINUMAB-LDRM
     Indication: Dermatitis atopic
     Dates: end: 202501

REACTIONS (4)
  - Ocular hyperaemia [Unknown]
  - Eye swelling [Unknown]
  - Infection [Unknown]
  - Eye discharge [Unknown]
